FAERS Safety Report 14510551 (Version 2)
Quarter: 2018Q1

REPORT INFORMATION
  Report Type: Report from Study
  Country: DE (occurrence: DE)
  Receive Date: 20180209
  Receipt Date: 20180221
  Transmission Date: 20180509
  Serious: Yes (Hospitalization)
  Sender: FDA-Public Use
  Company Number: DE-PFIZER INC-2018041931

PATIENT
  Age: 73 Year
  Sex: Female
  Weight: 49 kg

DRUGS (5)
  1. CETUXIMAB. [Suspect]
     Active Substance: CETUXIMAB
     Indication: COLORECTAL CANCER METASTATIC
     Dosage: 392 MG, WEEKLY
     Route: 042
     Dates: start: 20171114
  2. 5-FU [Suspect]
     Active Substance: FLUOROURACIL
     Indication: COLORECTAL CANCER METASTATIC
     Dosage: 3770 MG, UNK
     Route: 042
     Dates: start: 20171114
  3. AVELUMAB [Suspect]
     Active Substance: AVELUMAB
     Indication: COLORECTAL CANCER METASTATIC
     Dosage: 530 MG, CYCLIC (ONCE EVERY TWO WEEKS)
     Route: 042
     Dates: start: 20171128
  4. OXALIPLATIN. [Suspect]
     Active Substance: OXALIPLATIN
     Indication: COLORECTAL CANCER METASTATIC
     Dosage: 100 MG, UNK
     Route: 042
     Dates: start: 20171114, end: 20171128
  5. LEUCOVORIN. [Suspect]
     Active Substance: LEUCOVORIN
     Indication: COLORECTAL CANCER METASTATIC
     Dosage: 630 MG, UNK
     Route: 042
     Dates: start: 20171114

REACTIONS (1)
  - Gastrointestinal disorder [Recovered/Resolved]

NARRATIVE: CASE EVENT DATE: 20180122
